FAERS Safety Report 13300287 (Version 1)
Quarter: 2017Q1

REPORT INFORMATION
  Report Type: Spontaneous
  Country: GB (occurrence: GB)
  Receive Date: 20170307
  Receipt Date: 20170307
  Transmission Date: 20170428
  Serious: Yes (Hospitalization, Other)
  Sender: FDA-Public Use
  Company Number: GB-009507513-1703GBR001978

PATIENT
  Age: 21 Year
  Sex: Female
  Weight: 68 kg

DRUGS (4)
  1. FEXOFENADINE HYDROCHLORIDE. [Concomitant]
     Active Substance: FEXOFENADINE HYDROCHLORIDE
     Dosage: 1 DF, QD
     Dates: start: 20160915
  2. VENTOLIN [Concomitant]
     Active Substance: ALBUTEROL SULFATE
     Dosage: 2 DF, UNK
     Route: 055
     Dates: start: 20160915
  3. FOSTAIR [Concomitant]
     Active Substance: BECLOMETHASONE\FORMOTEROL
     Dosage: 1-2 PUFFS TWICE A DAY
     Dates: start: 20160915
  4. MONTELUKAST SODIUM. [Suspect]
     Active Substance: MONTELUKAST SODIUM
     Indication: ASTHMA
     Dosage: LONG-TERM.
     Dates: start: 20141222

REACTIONS (3)
  - Eosinophilic granulomatosis with polyangiitis [Recovering/Resolving]
  - Effusion [Unknown]
  - Lethargy [Unknown]

NARRATIVE: CASE EVENT DATE: 20170220
